FAERS Safety Report 25071988 (Version 1)
Quarter: 2025Q1

REPORT INFORMATION
  Report Type: Spontaneous
  Country: US (occurrence: US)
  Receive Date: 20250313
  Receipt Date: 20250313
  Transmission Date: 20250409
  Serious: No
  Sender: Kenvue
  Company Number: US-KENVUE-20250202895

PATIENT
  Sex: Female

DRUGS (8)
  1. IMODIUM [Suspect]
     Active Substance: LOPERAMIDE HYDROCHLORIDE
     Indication: Diarrhoea
     Route: 065
  2. TYLENOL [Concomitant]
     Active Substance: ACETAMINOPHEN
     Indication: Infusion site pain
     Route: 065
  3. LIDOCAINE [Concomitant]
     Active Substance: LIDOCAINE
     Indication: Infusion site pain
     Route: 065
  4. TREPROSTINIL SODIUM [Concomitant]
     Active Substance: TREPROSTINIL SODIUM
     Indication: Pulmonary arterial hypertension
     Route: 058
  5. TREPROSTINIL SODIUM [Concomitant]
     Active Substance: TREPROSTINIL SODIUM
     Route: 058
  6. TREPROSTINIL SODIUM [Concomitant]
     Active Substance: TREPROSTINIL SODIUM
     Route: 058
  7. SILDENAFIL CITRATE [Concomitant]
     Active Substance: SILDENAFIL CITRATE
     Indication: Product used for unknown indication
     Route: 065
  8. OPSUMIT [Concomitant]
     Active Substance: MACITENTAN
     Indication: Product used for unknown indication
     Route: 065

REACTIONS (2)
  - Diarrhoea [Not Recovered/Not Resolved]
  - Drug ineffective [Unknown]
